FAERS Safety Report 10946460 (Version 2)
Quarter: 2015Q2

REPORT INFORMATION
  Report Type: Spontaneous
  Country: US (occurrence: US)
  Receive Date: 20150323
  Receipt Date: 20150409
  Transmission Date: 20150821
  Serious: No
  Sender: FDA-Public Use
  Company Number: US-GLAXOSMITHKLINE-US2015033778

PATIENT
  Age: 39 Year
  Sex: Female

DRUGS (1)
  1. FABIOR [Suspect]
     Active Substance: TAZAROTENE
     Indication: ACNE
     Dosage: UNK UNK, QD
     Route: 003
     Dates: start: 20150302

REACTIONS (9)
  - Urticaria [Recovering/Resolving]
  - Hypersensitivity [Recovering/Resolving]
  - Burning sensation [Recovering/Resolving]
  - Skin exfoliation [Recovering/Resolving]
  - Paraesthesia [Recovering/Resolving]
  - Rash macular [Recovering/Resolving]
  - Erythema [Recovering/Resolving]
  - Hyperaesthesia [Recovering/Resolving]
  - Skin ulcer [Recovering/Resolving]

NARRATIVE: CASE EVENT DATE: 20150303
